FAERS Safety Report 7610239-X (Version None)
Quarter: 2011Q3

REPORT INFORMATION
  Report Type: 
  Country: None (occurrence: None)
  Receive Date: 20110706
  Receipt Date: 20110627
  Transmission Date: 20111222
  Serious: Yes (Other)
  Sender: FDA-Public Use
  Company Number: 2011SP029741

PATIENT

DRUGS (1)
  1. DESLORATADINE [Suspect]
     Indication: PRODUCT USED FOR UNKNOWN INDICATION

REACTIONS (6)
  - DISORIENTATION [None]
  - FATIGUE [None]
  - INSOMNIA [None]
  - HEADACHE [None]
  - NAUSEA [None]
  - IMPAIRED DRIVING ABILITY [None]
